FAERS Safety Report 10056226 (Version 1)
Quarter: 2014Q2

REPORT INFORMATION
  Report Type: Spontaneous
  Country: CA (occurrence: CA)
  Receive Date: 20140403
  Receipt Date: 20140403
  Transmission Date: 20141212
  Serious: Yes (Hospitalization, Other)
  Sender: FDA-Public Use
  Company Number: CA-009507513-1404CAN001096

PATIENT
  Age: 68 Year
  Sex: Female

DRUGS (1)
  1. SINGULAIR [Suspect]
     Indication: ASTHMA
     Dosage: 10 MG, QD
     Route: 048
     Dates: start: 20120710

REACTIONS (3)
  - Joint surgery [Recovered/Resolved]
  - Transfusion [Recovered/Resolved]
  - Arthritis [Recovering/Resolving]
